FAERS Safety Report 10079005 (Version 3)
Quarter: 2014Q2

REPORT INFORMATION
  Report Type: Spontaneous
  Country: US (occurrence: US)
  Receive Date: 20140415
  Receipt Date: 20140515
  Transmission Date: 20141212
  Serious: Yes (Hospitalization, Other)
  Sender: FDA-Public Use
  Company Number: US-JNJFOC-20140409678

PATIENT
  Age: 62 Year
  Sex: Male
  Weight: 97.52 kg

DRUGS (11)
  1. XARELTO [Suspect]
     Indication: PULMONARY EMBOLISM
     Route: 048
     Dates: start: 20140322, end: 20140403
  2. XARELTO [Suspect]
     Indication: PULMONARY EMBOLISM
     Route: 048
     Dates: start: 20140317, end: 20140321
  3. XARELTO [Suspect]
     Indication: THROMBOSIS PROPHYLAXIS
     Route: 048
     Dates: start: 20140317, end: 20140321
  4. XARELTO [Suspect]
     Indication: THROMBOSIS PROPHYLAXIS
     Route: 048
     Dates: start: 20140322, end: 20140403
  5. XARELTO [Suspect]
     Indication: KNEE ARTHROPLASTY
     Route: 048
     Dates: start: 20140322, end: 20140403
  6. XARELTO [Suspect]
     Indication: KNEE ARTHROPLASTY
     Route: 048
     Dates: start: 20140317, end: 20140321
  7. FAMOTIDINE [Concomitant]
     Indication: PRODUCT USED FOR UNKNOWN INDICATION
     Route: 065
  8. ONDANSETRON [Concomitant]
     Indication: NAUSEA
     Route: 065
  9. PERCOCET [Concomitant]
     Indication: PAIN
     Dosage: UP TO 8 TABLETS
     Route: 065
     Dates: start: 20140317, end: 20140414
  10. GLUCOSAMINE [Concomitant]
     Route: 065
  11. RANITIDINE [Concomitant]
     Indication: PRODUCT USED FOR UNKNOWN INDICATION
     Route: 065

REACTIONS (5)
  - Liver function test abnormal [Recovered/Resolved]
  - Platelet count increased [Recovering/Resolving]
  - Pulmonary embolism [Unknown]
  - White blood cell count increased [Not Recovered/Not Resolved]
  - Pyrexia [Unknown]
